FAERS Safety Report 8256430-3 (Version None)
Quarter: 2012Q2

REPORT INFORMATION
  Report Type: 
  Country: None (occurrence: None)
  Receive Date: 20120403
  Receipt Date: 20120327
  Transmission Date: 20120825
  Serious: Yes (Other)
  Sender: FDA-Public Use
  Company Number: US-PFIZER INC-2012079514

PATIENT
  Sex: Female

DRUGS (2)
  1. LYRICA [Suspect]
     Dosage: 100 MG
  2. LYRICA [Suspect]
     Dosage: 50 MG, UNK

REACTIONS (2)
  - FIBROMYALGIA [None]
  - PAIN [None]
